FAERS Safety Report 17699583 (Version 1)
Quarter: 2020Q2

REPORT INFORMATION
  Report Type: Spontaneous
  Country: TR (occurrence: TR)
  Receive Date: 20200423
  Receipt Date: 20200423
  Transmission Date: 20200714
  Serious: Yes (Hospitalization)
  Sender: FDA-Public Use
  Company Number: TR-AMNEAL PHARMACEUTICALS-2020-AMRX-01174

PATIENT
  Age: 53 Year
  Sex: Female

DRUGS (2)
  1. IRBESARTAN/HCT [Concomitant]
     Indication: HYPERTENSION
     Dosage: 300/12.5MG, DAILY
     Route: 065
  2. PREGABALIN. [Suspect]
     Active Substance: PREGABALIN
     Indication: FIBROMYALGIA
     Dosage: 150 MILLIGRAM, QD
     Route: 065

REACTIONS (1)
  - Parkinsonism [Recovered/Resolved]
